FAERS Safety Report 22632292 (Version 1)
Quarter: 2023Q2

REPORT INFORMATION
  Report Type: Spontaneous
  Country: US (occurrence: US)
  Receive Date: 20230623
  Receipt Date: 20230623
  Transmission Date: 20230721
  Serious: No
  Sender: FDA-Public Use
  Company Number: US-SA-SAC20230616001269

PATIENT
  Sex: Female

DRUGS (1)
  1. DUPIXENT [Suspect]
     Active Substance: DUPILUMAB
     Dosage: DOSE- 300MG FREQUENCY- OTHER
     Route: 058

REACTIONS (5)
  - Eczema [Unknown]
  - Dyspnoea [Unknown]
  - Secretion discharge [Unknown]
  - Asthma [Unknown]
  - Hypersensitivity [Unknown]
